FAERS Safety Report 7936360-4 (Version None)
Quarter: 2011Q4

REPORT INFORMATION
  Report Type: 
  Country: None (occurrence: None)
  Receive Date: 20111121
  Receipt Date: 20111109
  Transmission Date: 20120403
  Serious: Yes (Other)
  Sender: FDA-Public Use
  Company Number: 2011MA016443

PATIENT
  Sex: Female

DRUGS (3)
  1. SERTRALINE HYDROCHLORIDE [Suspect]
  2. MIRTAZAPINE [Suspect]
  3. CITALOPRAM HYDROBROMIDE [Suspect]
     Dates: end: 20090101

REACTIONS (10)
  - HYPERHIDROSIS [None]
  - TREMOR [None]
  - DRY EYE [None]
  - PARAESTHESIA [None]
  - DIZZINESS [None]
  - CONSTIPATION [None]
  - ALOPECIA [None]
  - OBSTRUCTIVE AIRWAYS DISORDER [None]
  - DECREASED APPETITE [None]
  - WITHDRAWAL SYNDROME [None]
